FAERS Safety Report 25447635 (Version 1)
Quarter: 2025Q2

REPORT INFORMATION
  Report Type: Spontaneous
  Country: US (occurrence: None)
  Receive Date: 20250617
  Receipt Date: 20250617
  Transmission Date: 20250716
  Serious: Yes (Hospitalization)
  Sender: FDA-CTU
  Company Number: None

PATIENT
  Age: 71 Year
  Sex: Male
  Weight: 85 kg

DRUGS (1)
  1. TEPEZZA [Suspect]
     Active Substance: TEPROTUMUMAB-TRBW
     Indication: Endocrine ophthalmopathy
     Route: 042
     Dates: start: 20241024, end: 20250108

REACTIONS (3)
  - Blood glucose increased [None]
  - Diarrhoea [None]
  - Abdominal abscess [None]

NARRATIVE: CASE EVENT DATE: 20250108
